FAERS Safety Report 21997612 (Version 2)
Quarter: 2023Q1

REPORT INFORMATION
  Report Type: Report from Study
  Country: US (occurrence: None)
  Receive Date: 20230216
  Receipt Date: 20230302
  Transmission Date: 20230417
  Serious: Yes (Hospitalization)
  Sender: FDA-Public Use
  Company Number: US-ROCHE-3169587

PATIENT
  Age: 72 Year
  Sex: Male
  Weight: 70.4 kg

DRUGS (61)
  1. RITUXIMAB [Suspect]
     Active Substance: RITUXIMAB
     Indication: Diffuse large B-cell lymphoma
     Route: 041
     Dates: start: 20220722
  2. EPCORITAMAB [Suspect]
     Active Substance: EPCORITAMAB
     Indication: Diffuse large B-cell lymphoma
     Dosage: PRIMING DOSE C1D1
     Route: 058
     Dates: start: 20220723, end: 20220723
  3. EPCORITAMAB [Suspect]
     Active Substance: EPCORITAMAB
     Dosage: IINTERMEDIATE DOSE C1D8
     Route: 058
     Dates: start: 20220729, end: 20220729
  4. EPCORITAMAB [Suspect]
     Active Substance: EPCORITAMAB
     Dosage: FULL DOSE C1D8
     Route: 058
     Dates: start: 20220805
  5. CYCLOPHOSPHAMIDE [Suspect]
     Active Substance: CYCLOPHOSPHAMIDE
     Indication: Diffuse large B-cell lymphoma
     Route: 042
     Dates: start: 20220723
  6. DOXORUBICIN [Suspect]
     Active Substance: DOXORUBICIN
     Indication: Diffuse large B-cell lymphoma
     Route: 042
     Dates: start: 20220723
  7. VINCRISTINE [Suspect]
     Active Substance: VINCRISTINE
     Indication: Diffuse large B-cell lymphoma
     Route: 042
     Dates: start: 20220723
  8. PREDNISONE [Suspect]
     Active Substance: PREDNISONE
     Indication: Diffuse large B-cell lymphoma
     Route: 048
     Dates: start: 20220722, end: 20220726
  9. PREDNISONE [Suspect]
     Active Substance: PREDNISONE
     Route: 048
     Dates: start: 20220812, end: 20220816
  10. PREDNISONE [Suspect]
     Active Substance: PREDNISONE
     Route: 048
     Dates: start: 20220729, end: 20220729
  11. PREDNISONE [Suspect]
     Active Substance: PREDNISONE
     Route: 048
     Dates: start: 20220729, end: 20220801
  12. PREDNISONE [Suspect]
     Active Substance: PREDNISONE
     Route: 048
     Dates: start: 20220805, end: 20220808
  13. PREDNISONE [Suspect]
     Active Substance: PREDNISONE
     Route: 048
     Dates: start: 20220812, end: 20220816
  14. PREDNISONE [Suspect]
     Active Substance: PREDNISONE
     Route: 048
     Dates: start: 20220902, end: 20220906
  15. ACETAMINOPHEN [Concomitant]
     Active Substance: ACETAMINOPHEN
     Dosage: 29-JUL-2022, 05-AUG-2022
     Dates: start: 20220723, end: 20220812
  16. ACETAMINOPHEN [Concomitant]
     Active Substance: ACETAMINOPHEN
     Dates: start: 20221028, end: 20221028
  17. DIPHENHYDRAMINE [Concomitant]
     Active Substance: DIPHENHYDRAMINE
     Dosage: 29-JUL-2022, 05-AUG-2022
     Route: 042
     Dates: start: 20220723, end: 20220812
  18. DIPHENHYDRAMINE [Concomitant]
     Active Substance: DIPHENHYDRAMINE
     Dates: start: 20220923
  19. PREDNISONE [Concomitant]
     Active Substance: PREDNISONE
     Dosage: ORAL PREDNISONE 50 MG FROM 27-JUL-2022 TO 28-JUL-2022, ORAL PREDNISONE 20 MG AND 100 MG ON 29-JUL-20
     Route: 048
     Dates: start: 20220727, end: 20220902
  20. NEULASTA [Concomitant]
     Active Substance: PEGFILGRASTIM
     Dates: start: 20220725, end: 20220725
  21. HYDROCODONE [Concomitant]
     Active Substance: HYDROCODONE
  22. APREPITANT [Concomitant]
     Active Substance: APREPITANT
     Dates: start: 20220723
  23. ATORVASTATIN [Concomitant]
     Active Substance: ATORVASTATIN
  24. ATOVAQUONE [Concomitant]
     Active Substance: ATOVAQUONE
  25. DOCUSATE SODIUM [Concomitant]
     Active Substance: DOCUSATE SODIUM
  26. DULAGLUTIDE [Concomitant]
     Active Substance: DULAGLUTIDE
  27. ENOXAPARIN [Concomitant]
     Active Substance: ENOXAPARIN
  28. INSULIN GLARGINE [Concomitant]
     Active Substance: INSULIN GLARGINE
  29. NPH INSULIN [Concomitant]
     Active Substance: INSULIN BEEF
  30. INSULIN ASPART [Concomitant]
     Active Substance: INSULIN ASPART
  31. LORAZEPAM [Concomitant]
     Active Substance: LORAZEPAM
  32. LOSARTAN [Concomitant]
     Active Substance: LOSARTAN
  33. METFORMIN [Concomitant]
     Active Substance: METFORMIN HYDROCHLORIDE
  34. MIRABEGRON [Concomitant]
     Active Substance: MIRABEGRON
  35. SODIUM CHLORIDE [Concomitant]
     Active Substance: SODIUM CHLORIDE
  36. OMEPRAZOLE [Concomitant]
     Active Substance: OMEPRAZOLE
  37. ONDANSETRON [Concomitant]
     Active Substance: ONDANSETRON
  38. OXYCODONE [Concomitant]
     Active Substance: OXYCODONE
  39. PALONOSETRON [Concomitant]
     Active Substance: PALONOSETRON
  40. PEGFILGRASTIM [Concomitant]
     Active Substance: PEGFILGRASTIM
  41. PROCHLORPERAZINE [Concomitant]
     Active Substance: PROCHLORPERAZINE
  42. SERTRALINE [Concomitant]
     Active Substance: SERTRALINE HYDROCHLORIDE
  43. TADALAFIL [Concomitant]
     Active Substance: TADALAFIL
  44. ZOLPIDEM [Concomitant]
     Active Substance: ZOLPIDEM TARTRATE
  45. ACYCLOVIR [Concomitant]
     Active Substance: ACYCLOVIR
  46. ALLOPURINOL [Concomitant]
     Active Substance: ALLOPURINOL
  47. POLYETHYLENE GLYCOL 3350 [Concomitant]
     Active Substance: POLYETHYLENE GLYCOL 3350
  48. SENNOSIDES A AND B [Concomitant]
     Active Substance: SENNOSIDES A AND B
  49. SODIUM HYALURONATE [Concomitant]
     Active Substance: HYALURONATE SODIUM
  50. SUCRALFATE [Concomitant]
     Active Substance: SUCRALFATE
  51. METHOTREXATE [Concomitant]
     Active Substance: METHOTREXATE
     Dates: start: 20220811, end: 20220922
  52. LIDOCAINE [Concomitant]
     Active Substance: LIDOCAINE
  53. MAGNESIUM SULFATE [Concomitant]
     Active Substance: MAGNESIUM SULFATE
  54. AMOXICILLIN\CLAVULANIC ACID [Concomitant]
     Active Substance: AMOXICILLIN\CLAVULANIC ACID
     Dates: start: 20220902
  55. HYDROMORPHONE [Concomitant]
     Active Substance: HYDROMORPHONE
  56. MAGNESIUM HYDROXIDE [Concomitant]
     Active Substance: MAGNESIUM HYDROXIDE
     Dates: start: 20220902, end: 20220902
  57. MILK OF MAGNESIA [Concomitant]
     Active Substance: MAGNESIUM HYDROXIDE
  58. MORPHINE SULFATE [Concomitant]
     Active Substance: MORPHINE SULFATE
  59. PROCTOFOAM HC [Concomitant]
     Active Substance: HYDROCORTISONE ACETATE\PRAMOXINE HYDROCHLORIDE
  60. SODIUM CHLORIDE [Concomitant]
     Active Substance: SODIUM CHLORIDE
  61. PALONOSETRON [Concomitant]
     Active Substance: PALONOSETRON

REACTIONS (4)
  - Neutropenia [Recovered/Resolved]
  - Cytokine release syndrome [Recovered/Resolved]
  - Diarrhoea [Recovered/Resolved]
  - Stomatitis [Recovered/Resolved]

NARRATIVE: CASE EVENT DATE: 20220729
